FAERS Safety Report 16823016 (Version 2)
Quarter: 2020Q1

REPORT INFORMATION
  Report Type: Spontaneous
  Country: ES (occurrence: ES)
  Receive Date: 20190918
  Receipt Date: 20200323
  Transmission Date: 20200409
  Serious: Yes (Other)
  Sender: FDA-Public Use
  Company Number: PHHY2019ES214190

PATIENT
  Age: 80 Year
  Sex: Female

DRUGS (1)
  1. VILDAGLIPTIN [Suspect]
     Active Substance: VILDAGLIPTIN
     Indication: TYPE 2 DIABETES MELLITUS
     Dosage: 50 MILLIGRAM, QD
     Route: 065
     Dates: start: 201804

REACTIONS (5)
  - Dermatitis bullous [Unknown]
  - Pemphigoid [Recovering/Resolving]
  - Lichen planus [Recovering/Resolving]
  - Blister [Unknown]
  - Skin erosion [Unknown]

NARRATIVE: CASE EVENT DATE: 201807
